FAERS Safety Report 5748678-4 (Version None)
Quarter: 2008Q2

REPORT INFORMATION
  Report Type: 
  Country: None (occurrence: None)
  Receive Date: 20080521
  Receipt Date: 20080508
  Transmission Date: 20081010
  Serious: Yes (Hospitalization)
  Sender: FDA-Public Use
  Company Number: WAES 0802DEU00045

PATIENT
  Age: 57 Year
  Sex: Male

DRUGS (8)
  1. JANUVIA [Suspect]
     Indication: TYPE 2 DIABETES MELLITUS
     Dosage: 100 MG/DAILY PO
     Route: 048
     Dates: start: 20071130, end: 20071230
  2. AMLODIPINE BESYLATE [Concomitant]
  3. BISOPROLOL FUMARATE [Concomitant]
  4. DIGITOXIN TAB [Concomitant]
  5. METFORMIN HCL [Concomitant]
  6. PHENPROCOUMON [Concomitant]
  7. TORSEMIDE [Concomitant]
  8. VALSARTAN [Concomitant]

REACTIONS (4)
  - PALPABLE PURPURA [None]
  - RED CELL DISTRIBUTION WIDTH INCREASED [None]
  - VASCULITIS [None]
  - WHITE BLOOD CELL COUNT INCREASED [None]
